FAERS Safety Report 5361470-8 (Version None)
Quarter: 2007Q2

REPORT INFORMATION
  Report Type: 
  Country: None (occurrence: None)
  Receive Date: 20070619
  Receipt Date: 20070614
  Transmission Date: 20071010
  Serious: Yes (Death, Hospitalization)
  Sender: FDA-Public Use
  Company Number: JP-SP-2007-00529

PATIENT
  Age: 75 Year
  Sex: Male

DRUGS (3)
  1. IMMUCYST [Suspect]
     Indication: CARCINOMA IN SITU OF BLADDER
     Route: 043
     Dates: start: 20060117, end: 20060307
  2. IMMUCYST [Suspect]
     Route: 043
     Dates: start: 20060117, end: 20060307
  3. IMMUCYST [Suspect]
     Route: 043
     Dates: start: 20060117, end: 20060307

REACTIONS (5)
  - HEPATIC FUNCTION ABNORMAL [None]
  - MULTI-ORGAN FAILURE [None]
  - PROSTATITIS [None]
  - PYREXIA [None]
  - SEPTIC SHOCK [None]
